FAERS Safety Report 5404765-1 (Version None)
Quarter: 2007Q3

REPORT INFORMATION
  Report Type: 
  Country: None (occurrence: None)
  Receive Date: 20070801
  Receipt Date: 20070719
  Transmission Date: 20080115
  Serious: Yes (Life-Threatening, Hospitalization)
  Sender: FDA-Public Use
  Company Number: DSA_30221_2007

PATIENT
  Age: 63 Year
  Sex: Female
  Weight: 51 kg

DRUGS (2)
  1. TILDIEM                  (TILDIEM) (NOT SPECIFIED) [Suspect]
     Indication: HYPERTENSION
     Dosage: (DF)
  2. TIMOLOL MALEATE [Suspect]
     Indication: GLAUCOMA
     Dosage: DF INTRAOCULAR
     Route: 031

REACTIONS (5)
  - CORONARY ARTERY OCCLUSION [None]
  - CORONARY ARTERY STENOSIS [None]
  - DRUG LEVEL INCREASED [None]
  - SINOATRIAL BLOCK [None]
  - SYNCOPE [None]
